FAERS Safety Report 5487631-5 (Version None)
Quarter: 2007Q4

REPORT INFORMATION
  Report Type: 
  Country: None (occurrence: None)
  Receive Date: 20071012
  Receipt Date: 20071012
  Transmission Date: 20080405
  Serious: Yes (Hospitalization)
  Sender: FDA-Public Use
  Company Number: None

PATIENT
  Sex: Male
  Weight: 90.72 kg

DRUGS (3)
  1. FLUOROURACIL [Suspect]
     Dosage: 375 MG
  2. LEUCOVORIN CALCIUM [Suspect]
     Dosage: 900 MG
  3. ELOXATIN [Suspect]
     Dosage: 185 MG

REACTIONS (4)
  - CLOSTRIDIUM DIFFICILE TOXIN TEST POSITIVE [None]
  - PANCREATITIS [None]
  - RENAL FAILURE [None]
  - SMALL INTESTINAL OBSTRUCTION [None]
